FAERS Safety Report 4907558-4 (Version None)
Quarter: 2006Q1

REPORT INFORMATION
  Report Type: 
  Country: None (occurrence: None)
  Receive Date: 20060208
  Receipt Date: 20060202
  Transmission Date: 20060701
  Serious: Yes (Hospitalization, Other)
  Sender: FDA-Public Use
  Company Number: FRWYE359202FEB06

PATIENT
  Age: 65 Year
  Sex: Female

DRUGS (3)
  1. EFFEXOR XR [Suspect]
     Indication: DEPRESSION
     Dosage: 75 MG, TOTAL DAILY ORAL
     Route: 048
     Dates: end: 20051208
  2. TAHOR (ATORVASTATIN) [Concomitant]
  3. RABEPRAZOLE SODIUM [Concomitant]

REACTIONS (2)
  - CONFUSIONAL STATE [None]
  - EPILEPSY [None]
